FAERS Safety Report 8600308-X (Version None)
Quarter: 2012Q3

REPORT INFORMATION
  Report Type: 
  Country: None (occurrence: None)
  Receive Date: 20120817
  Receipt Date: 20120813
  Transmission Date: 20120928
  Serious: No
  Sender: FDA-Public Use
  Company Number: US-BIOGENIDEC-2012BI031242

PATIENT
  Age: 62 Year
  Sex: Female

DRUGS (3)
  1. AVONEX [Suspect]
     Indication: MULTIPLE SCLEROSIS
     Route: 030
  2. AVONEX [Suspect]
     Route: 030
     Dates: start: 20000522
  3. AVONEX [Suspect]
     Route: 030
     Dates: start: 19960209

REACTIONS (3)
  - SLUGGISHNESS [None]
  - COGNITIVE DISORDER [None]
  - MOOD ALTERED [None]
